FAERS Safety Report 14007006 (Version 1)
Quarter: 2017Q3

REPORT INFORMATION
  Report Type: Spontaneous
  Country: US (occurrence: US)
  Receive Date: 20170925
  Receipt Date: 20170925
  Transmission Date: 20171128
  Serious: No
  Sender: FDA-Public Use
  Company Number: US-PFIZER INC-2017411362

PATIENT
  Age: 62 Year
  Sex: Female

DRUGS (3)
  1. LYRICA [Suspect]
     Active Substance: PREGABALIN
     Dosage: 50 MG, 1X/DAY
     Dates: start: 20170919, end: 20170920
  2. ZOFRAN [Concomitant]
     Active Substance: ONDANSETRON HYDROCHLORIDE
     Dosage: UNK
  3. LYRICA [Suspect]
     Active Substance: PREGABALIN
     Indication: NEUROPATHY PERIPHERAL
     Dosage: 150 MG, PILL AT NIGHT
     Dates: start: 201709

REACTIONS (6)
  - Eye disorder [Recovered/Resolved]
  - Product use in unapproved indication [Unknown]
  - Feeling drunk [Recovered/Resolved]
  - Dyskinesia [Recovered/Resolved]
  - Tardive dyskinesia [Recovered/Resolved]
  - Muscle spasticity [Recovered/Resolved]

NARRATIVE: CASE EVENT DATE: 201709
